FAERS Safety Report 9158431 (Version 2)
Quarter: 2013Q2

REPORT INFORMATION
  Report Type: Spontaneous
  Country: FR (occurrence: FR)
  Receive Date: 20130312
  Receipt Date: 20130617
  Transmission Date: 20140414
  Serious: Yes (Hospitalization)
  Sender: FDA-Public Use
  Company Number: FR-B.I. PHARMACEUTICALS,INC./RIDGEFIELD-2013-FF-00655FF

PATIENT
  Age: 91 Year
  Sex: Female

DRUGS (9)
  1. PRADAXA [Suspect]
     Indication: ATRIAL FIBRILLATION
     Dosage: 220 MG
     Route: 048
     Dates: start: 201212, end: 20130117
  2. INEXIUM [Concomitant]
     Dosage: 80 MG
     Route: 048
     Dates: start: 20130115
  3. IMOVANE [Concomitant]
     Dosage: 7.5 MG
     Route: 048
  4. LASILIX [Concomitant]
     Dosage: 40 MG
     Route: 048
  5. KARDEGIC [Concomitant]
     Dosage: 75 MG
     Route: 048
     Dates: start: 20130120
  6. RISPERDAL [Concomitant]
     Dosage: 0.25 MG
     Route: 048
  7. LOSARTAN [Concomitant]
     Dosage: 50 MG
     Route: 048
  8. LERCAN [Concomitant]
     Dosage: 10 MG
     Route: 048
  9. TARDYFERON [Concomitant]
     Dosage: 10 MG
     Route: 048

REACTIONS (3)
  - Asthenia [Recovered/Resolved]
  - Melaena [Recovered/Resolved]
  - Anaemia [Not Recovered/Not Resolved]
